FAERS Safety Report 26028262 (Version 1)
Quarter: 2025Q4

REPORT INFORMATION
  Report Type: Spontaneous
  Country: US (occurrence: US)
  Receive Date: 20251111
  Receipt Date: 20251111
  Transmission Date: 20260117
  Serious: No
  Sender: Alora Pharma
  Company Number: US-ACELLA PHARMACEUTICALS, LLC-2025ALO02486

PATIENT
  Sex: Female

DRUGS (1)
  1. CICLOPIROX [Suspect]
     Active Substance: CICLOPIROX
     Indication: Onychomycosis

REACTIONS (2)
  - Therapeutic product effect incomplete [Not Recovered/Not Resolved]
  - Product physical consistency issue [Not Recovered/Not Resolved]
